FAERS Safety Report 17578254 (Version 1)
Quarter: 2020Q1

REPORT INFORMATION
  Report Type: Spontaneous
  Country: NL (occurrence: NL)
  Receive Date: 20200324
  Receipt Date: 20200324
  Transmission Date: 20200409
  Serious: Yes (Other)
  Sender: FDA-Public Use
  Company Number: NL-MYLANLABS-2020M1031151

PATIENT
  Sex: Female
  Weight: 69 kg

DRUGS (3)
  1. TRAMADOL. [Concomitant]
     Active Substance: TRAMADOL
     Dosage: CAPSULE, 50 MG (MILLIGRAM)
  2. OMEPRAZOL                          /00661201/ [Concomitant]
     Active Substance: OMEPRAZOLE
     Dosage: MAAGSAPRESISTENTE TABLET, 20 MG (MILLIGRAM)
  3. ZOLEDRONIC ACID [Suspect]
     Active Substance: ZOLEDRONIC ACID
     Indication: OSTEOPOROSIS
     Dosage: INFUSION LIQUID, 0.05 MG / ML (MILLIGRAMS PER MILLILITER),  ONCE A YEAR, 5 MG
     Dates: start: 20200106, end: 20200106

REACTIONS (1)
  - Atrial fibrillation [Not Recovered/Not Resolved]
